FAERS Safety Report 6886758-0 (Version None)
Quarter: 2010Q3

REPORT INFORMATION
  Report Type: 
  Country: None (occurrence: None)
  Receive Date: 20100730
  Receipt Date: 20100717
  Transmission Date: 20110219
  Serious: Yes (Hospitalization)
  Sender: FDA-Public Use
  Company Number: JP-SHIRE-SPV1-2010-00688

PATIENT

DRUGS (14)
  1. LANTHANUM CARBONATE [Suspect]
     Indication: HYPERPHOSPHATAEMIA
     Dosage: 500 MG TOTAL DAILY DOSE (IMMEDIATELY AFTER A MEAL)
     Route: 048
     Dates: start: 20090602, end: 20090703
  2. LANTHANUM CARBONATE [Suspect]
     Dosage: 250 MG TOTAL DAILY DOSE (IMMEDIATELY AFTER A MEAL)
     Route: 048
     Dates: start: 20090914
  3. TANKARU [Concomitant]
     Indication: HYPERPHOSPHATAEMIA
     Dosage: 3 G, UNKNOWN
     Route: 048
  4. ALFAROL [Concomitant]
     Indication: PRODUCT USED FOR UNKNOWN INDICATION
     Dosage: .5 UG, UNKNOWN
     Route: 048
  5. ALOSITOL [Concomitant]
     Indication: PRODUCT USED FOR UNKNOWN INDICATION
     Dosage: 50 MG, UNKNOWN
     Route: 048
  6. LASIX [Concomitant]
     Indication: RENAL IMPAIRMENT
     Dosage: 200 MG, UNKNOWN
     Route: 048
  7. MEVALOTIN [Concomitant]
     Indication: PRODUCT USED FOR UNKNOWN INDICATION
     Dosage: 10 MG, UNKNOWN
     Route: 048
  8. RABEPRAZOLE SODIUM [Concomitant]
     Indication: PRODUCT USED FOR UNKNOWN INDICATION
     Dosage: 10 MG, UNKNOWN
     Route: 048
  9. FLUITRAN [Concomitant]
     Indication: RENAL IMPAIRMENT
     Dosage: 1 MG, UNKNOWN
     Route: 048
  10. ALDACTONE [Concomitant]
     Indication: RENAL IMPAIRMENT
     Dosage: 25 MG, UNKNOWN
     Route: 048
  11. CLONAZEPAM [Concomitant]
     Indication: PRODUCT USED FOR UNKNOWN INDICATION
     Dosage: .5 MG, UNKNOWN
     Route: 048
  12. DEPAS [Concomitant]
     Indication: PRODUCT USED FOR UNKNOWN INDICATION
     Dosage: 1 MG, UNKNOWN
     Route: 048
  13. EPOGIN [Concomitant]
     Indication: PRODUCT USED FOR UNKNOWN INDICATION
     Dosage: 24 KIU, UNKNOWN
     Route: 058
  14. PENFILL R [Concomitant]
     Indication: PRODUCT USED FOR UNKNOWN INDICATION
     Dosage: 7 IU, UNKNOWN
     Route: 058

REACTIONS (1)
  - GASTROENTERITIS [None]
